FAERS Safety Report 9865147 (Version 4)
Quarter: 2015Q4

REPORT INFORMATION
  Report Type: Spontaneous
  Country: US (occurrence: US)
  Receive Date: 20140203
  Receipt Date: 20151111
  Transmission Date: 20160305
  Serious: Yes (Hospitalization)
  Sender: FDA-Public Use
  Company Number: US-LUNDBECK-DKLU1096530

PATIENT
  Age: 4 Year
  Sex: Male
  Weight: 13 kg

DRUGS (10)
  1. SABRIL [Suspect]
     Active Substance: VIGABATRIN
     Route: 048
     Dates: start: 20140131
  2. ONFI [Concomitant]
     Active Substance: CLOBAZAM
     Indication: PRODUCT USED FOR UNKNOWN INDICATION
     Route: 048
  3. PHENOBARBITAL. [Concomitant]
     Active Substance: PHENOBARBITAL
     Indication: SEIZURE
     Route: 048
  4. SABRIL [Suspect]
     Active Substance: VIGABATRIN
     Indication: EPILEPSY
  5. PHENOBARBITAL. [Concomitant]
     Active Substance: PHENOBARBITAL
  6. SABRIL [Suspect]
     Active Substance: VIGABATRIN
     Indication: INFANTILE SPASMS
     Route: 048
     Dates: start: 20100910
  7. TOPAMAX [Concomitant]
     Active Substance: TOPIRAMATE
  8. TOPAMAX [Concomitant]
     Active Substance: TOPIRAMATE
  9. TOPAMAX [Concomitant]
     Active Substance: TOPIRAMATE
     Indication: SEIZURE
     Route: 065
  10. PHENOBARBITAL. [Concomitant]
     Active Substance: PHENOBARBITAL

REACTIONS (8)
  - Upper respiratory tract infection [Recovered/Resolved]
  - Pneumonia [Unknown]
  - Sepsis [Unknown]
  - Seizure [Recovered/Resolved]
  - Parainfluenzae virus infection [Unknown]
  - Urinary tract infection [Unknown]
  - Clostridium difficile infection [Recovered/Resolved]
  - Respiratory distress [Recovered/Resolved]

NARRATIVE: CASE EVENT DATE: 201309
